FAERS Safety Report 20105523 (Version 1)
Quarter: 2021Q4

REPORT INFORMATION
  Report Type: Report from Study
  Country: US (occurrence: US)
  Receive Date: 20211124
  Receipt Date: 20211124
  Transmission Date: 20220303
  Serious: Yes (Other)
  Sender: FDA-Public Use
  Company Number: US-BIOGEN-2021BI01069875

PATIENT
  Sex: Female

DRUGS (1)
  1. TECFIDERA [Suspect]
     Active Substance: DIMETHYL FUMARATE
     Indication: Multiple sclerosis
     Route: 065
     Dates: start: 20200415

REACTIONS (6)
  - Deafness [Unknown]
  - Headache [Unknown]
  - Vision blurred [Unknown]
  - Fatigue [Unknown]
  - Asthenia [Unknown]
  - Multiple sclerosis relapse [Unknown]
